FAERS Safety Report 7350491-1 (Version None)
Quarter: 2011Q1

REPORT INFORMATION
  Report Type: 
  Country: None (occurrence: None)
  Receive Date: 20110314
  Receipt Date: 20110303
  Transmission Date: 20110831
  Serious: Yes (Other)
  Sender: FDA-Public Use
  Company Number: AU-JNJFOC-20110206457

PATIENT
  Sex: Female
  Weight: 83.7 kg

DRUGS (4)
  1. STELARA [Suspect]
     Route: 058
  2. STELARA [Suspect]
     Indication: PSORIASIS
     Route: 058
  3. PREDNISOLONE [Concomitant]
  4. METHOTREXATE [Concomitant]

REACTIONS (3)
  - PHOTOSENSITIVITY REACTION [None]
  - SUNBURN [None]
  - PSORIASIS [None]
